FAERS Safety Report 7376108-8 (Version None)
Quarter: 2011Q1

REPORT INFORMATION
  Report Type: 
  Country: None (occurrence: None)
  Receive Date: 20110325
  Receipt Date: 20110113
  Transmission Date: 20110831
  Serious: Yes (Hospitalization, Other)
  Sender: FDA-Public Use
  Company Number: JP-BAYER-2010-006331

PATIENT
  Age: 63 Year
  Sex: Male
  Weight: 66 kg

DRUGS (8)
  1. URSODIOL [Concomitant]
     Indication: PROPHYLAXIS
     Dosage: 3 IN 1 D
     Dates: start: 20051027
  2. LACTITOL [Concomitant]
     Indication: HYPERAMMONAEMIA
     Dosage: UNK
     Dates: start: 20080215
  3. SORAFENIB [Suspect]
     Dosage: 400 MG, BID
     Dates: start: 20100925
  4. FAMOTIDINE [Concomitant]
     Indication: GASTRITIS
     Dosage: 20 MG, BID
     Dates: start: 20080913
  5. UREA [Concomitant]
     Indication: PROPHYLAXIS
     Dosage: UNK UNK, PRN
     Route: 061
     Dates: start: 20100814
  6. BASEN [Concomitant]
     Indication: DIABETES MELLITUS
     Dosage: 0.2 MG, BID
     Dates: start: 20080913
  7. SORAFENIB [Suspect]
     Dosage: 400 MG, BID
     Dates: start: 20100814, end: 20100907
  8. AMINOLEBAN [Concomitant]
     Indication: HYPOALBUMINAEMIA
     Dosage: 50 GM, 1 IN 1 D
     Dates: start: 20080215

REACTIONS (2)
  - HEPATIC ENCEPHALOPATHY [None]
  - DEPRESSED LEVEL OF CONSCIOUSNESS [None]
